FAERS Safety Report 7968971-4 (Version None)
Quarter: 2011Q4

REPORT INFORMATION
  Report Type: 
  Country: None (occurrence: None)
  Receive Date: 20111209
  Receipt Date: 20111206
  Transmission Date: 20120403
  Serious: No
  Sender: FDA-Public Use
  Company Number: US-B.I. PHARMACEUTICALS,INC./RIDGEFIELD-2011-BP-27518BP

PATIENT
  Sex: Male

DRUGS (10)
  1. LASIX [Concomitant]
     Indication: FLUID RETENTION
     Dosage: 20 MG
     Route: 048
  2. NYSTATIN [Concomitant]
     Dosage: 15 MG
     Route: 048
  3. AMIODARONE HCL [Concomitant]
     Indication: CARDIAC DISORDER
     Dosage: 200 MG
     Route: 048
  4. MUCINEX DM [Concomitant]
     Indication: PRODUCTIVE COUGH
     Route: 048
  5. TAMSULOSIN HCL [Concomitant]
     Indication: PROSTATOMEGALY
     Dosage: 0.4 MG
     Route: 048
  6. SPIRONOLACTONE [Concomitant]
     Indication: FLUID RETENTION
     Dosage: 25 MG
     Route: 048
  7. CARVEDILOL [Concomitant]
     Dosage: 25 MG
     Route: 048
  8. PRADAXA [Suspect]
     Indication: ATRIAL FIBRILLATION
     Dosage: 300 MG
     Route: 048
     Dates: start: 20111115
  9. BENICAR [Concomitant]
     Indication: BLOOD PRESSURE
     Dosage: 40 MG
     Route: 048
  10. DIGOXIN [Concomitant]
     Dosage: 0.125 MCG
     Route: 048

REACTIONS (1)
  - BLOOD PRESSURE DECREASED [None]
